FAERS Safety Report 10082263 (Version 1)
Quarter: 2014Q2

REPORT INFORMATION
  Report Type: Spontaneous
  Country: PT (occurrence: PT)
  Receive Date: 20140416
  Receipt Date: 20140416
  Transmission Date: 20141212
  Serious: Yes (Hospitalization, Other)
  Sender: FDA-Public Use
  Company Number: PT-ASTRAZENECA-2014SE24710

PATIENT
  Age: 57 Year
  Sex: Female
  Weight: 53 kg

DRUGS (3)
  1. FASLODEX [Suspect]
     Indication: BREAST CANCER STAGE IV
     Route: 030
     Dates: start: 201106, end: 201402
  2. GINCOBEN [Concomitant]
     Indication: DEMENTIA
     Route: 048
  3. METAMIZOL MAGNESICO [Concomitant]
     Indication: PAIN
     Route: 048

REACTIONS (1)
  - Neutropenia [Recovered/Resolved]
